FAERS Safety Report 9895020 (Version 2)
Quarter: 2014Q1

REPORT INFORMATION
  Report Type: Spontaneous
  Country: US (occurrence: US)
  Receive Date: 20140213
  Receipt Date: 20140213
  Transmission Date: 20141002
  Serious: No
  Sender: FDA-Public Use
  Company Number: US-BRISTOL-MYERS SQUIBB COMPANY-17332131

PATIENT
  Age: 54 Year
  Sex: Female
  Weight: 61.22 kg

DRUGS (2)
  1. ABATACEPT SUBQ INJECTION 125MG/ML [Suspect]
     Indication: RHEUMATOID ARTHRITIS
     Dosage: LAST INJ:14MAR2013?PRESCRIPTION:0234900-12961
     Route: 058
  2. XANAX [Concomitant]

REACTIONS (6)
  - Influenza like illness [Unknown]
  - Condition aggravated [Unknown]
  - Drug ineffective [Unknown]
  - Weight decreased [Unknown]
  - Medication error [Unknown]
  - Decreased appetite [Unknown]
